FAERS Safety Report 4911176-1 (Version None)
Quarter: 2006Q1

REPORT INFORMATION
  Report Type: 
  Country: None (occurrence: None)
  Receive Date: 20060209
  Receipt Date: 20060203
  Transmission Date: 20060701
  Serious: Yes (Death)
  Sender: FDA-Public Use
  Company Number: 600125410/PHRM2006FRO0661

PATIENT
  Age: 74 Year
  Sex: Male

DRUGS (1)
  1. AK-FLUOR, 10%, AKORN [Suspect]
     Indication: ANGIOGRAM
     Dosage: INTRAVENOUS
     Dates: start: 20060131, end: 20060131

REACTIONS (2)
  - HYPERHIDROSIS [None]
  - SUDDEN DEATH [None]
